FAERS Safety Report 7162360-0 (Version None)
Quarter: 2010Q4

REPORT INFORMATION
  Report Type: 
  Country: None (occurrence: None)
  Receive Date: 20101215
  Receipt Date: 20091020
  Transmission Date: 20110411
  Serious: Yes (Other)
  Sender: FDA-Public Use
  Company Number: SE-PFIZER INC-2009285681

PATIENT
  Age: 29 Year

DRUGS (2)
  1. LYRICA [Suspect]
     Indication: DEPENDENCE
     Dosage: UNK
     Route: 048
     Dates: start: 20090101
  2. XANOR [Concomitant]
     Indication: DRUG DEPENDENCE
     Dosage: UNK
     Route: 048

REACTIONS (1)
  - DRUG ABUSE [None]
